FAERS Safety Report 9355558 (Version 1)
Quarter: 2013Q2

REPORT INFORMATION
  Report Type: Spontaneous
  Country: US (occurrence: US)
  Receive Date: 20130619
  Receipt Date: 20130619
  Transmission Date: 20140414
  Serious: Yes (Hospitalization)
  Sender: FDA-Public Use
  Company Number: US-PFIZER INC-2013179893

PATIENT
  Age: 64 Year
  Sex: Female

DRUGS (2)
  1. SUTENT [Suspect]
     Indication: PANCREATIC CARCINOMA
     Dosage: 25 MG, CYCLIC, DAILY (12.5 MG STRENGHT, 4 WEEKS ON, 2 WEEKS OFF)
     Route: 048
     Dates: start: 20110308, end: 201111
  2. SUTENT [Suspect]
     Indication: SOFT TISSUE CANCER
     Dosage: 25 MG, CYCLIC, DAILY  (4 WEEKS ON, 2 WEEKS OFF)
     Route: 048
     Dates: start: 201111

REACTIONS (39)
  - Tinnitus [Unknown]
  - Headache [Unknown]
  - Sensation of foreign body [Unknown]
  - Oral pain [Unknown]
  - Hypertension [Unknown]
  - Rash [Unknown]
  - Blister [Unknown]
  - Abdominal pain upper [Unknown]
  - Dysgeusia [Unknown]
  - Asthenia [Unknown]
  - Nausea [Unknown]
  - Dyspnoea [Unknown]
  - Hair colour changes [Unknown]
  - Skin atrophy [Unknown]
  - Hair growth abnormal [Unknown]
  - Feeling cold [Unknown]
  - Diarrhoea [Unknown]
  - Vulvovaginal dryness [Unknown]
  - Rash [Unknown]
  - Rash [Unknown]
  - Haematochezia [Unknown]
  - Cough [Unknown]
  - Weight fluctuation [Unknown]
  - Alopecia [Unknown]
  - Pain in extremity [Unknown]
  - Mood altered [Unknown]
  - Insomnia [Unknown]
  - Gingival bleeding [Unknown]
  - Epistaxis [Unknown]
  - Hypothyroidism [Unknown]
  - Arthralgia [Unknown]
  - Back pain [Unknown]
  - Tooth disorder [Unknown]
  - Neuropathy peripheral [Unknown]
  - Cubital tunnel syndrome [Unknown]
  - Off label use [Unknown]
  - Disease progression [Unknown]
  - Soft tissue cancer [Unknown]
  - Pancreatic carcinoma [Unknown]
